FAERS Safety Report 6689255-0 (Version None)
Quarter: 2010Q2

REPORT INFORMATION
  Report Type: 
  Country: None (occurrence: None)
  Receive Date: 20100409
  Receipt Date: 20100331
  Transmission Date: 20101027
  Serious: Yes (Other)
  Sender: FDA-Public Use
  Company Number: 2010SP019364

PATIENT
  Age: 24 Year
  Sex: Male

DRUGS (3)
  1. SAPHRIS [Suspect]
     Indication: BIPOLAR DISORDER
     Dosage: 5 MG; BID; SL
     Route: 060
  2. DEPAKOTE [Concomitant]
  3. CLOZARIL [Concomitant]

REACTIONS (1)
  - DRUG HYPERSENSITIVITY [None]
